FAERS Safety Report 4383321-0 (Version None)
Quarter: 2004Q2

REPORT INFORMATION
  Report Type: 
  Country: None (occurrence: None)
  Receive Date: 20040618
  Receipt Date: 20040614
  Transmission Date: 20050107
  Serious: Yes (Life-Threatening)
  Sender: FDA-Public Use
  Company Number: JP-JNJFOC-20040506900

PATIENT
  Age: 76 Year
  Sex: Female

DRUGS (12)
  1. ITRACONAZOLE [Suspect]
     Indication: CANDIDIASIS
     Dosage: 100 MG, 1 IN 1 DAY, ORAL
     Route: 048
     Dates: start: 20040512, end: 20040521
  2. ITRACONAZOLE [Suspect]
     Indication: URINARY TRACT INFECTION
     Dosage: 100 MG, 1 IN 1 DAY, ORAL
     Route: 048
     Dates: start: 20040512, end: 20040521
  3. GEBEN             (SULFADIAZINE SILVER) [Suspect]
     Indication: THERMAL BURN
     Dosage: 5 G, 1 IN 1 DAY, TOPICAL
     Route: 061
     Dates: start: 20040415, end: 20040521
  4. VANCOMYCIN HCL [Suspect]
     Indication: PNEUMONIA
     Dosage: 1.5 G, 1 IN 1 DAY, INTRAVENOUS DRIP
     Route: 041
     Dates: start: 20040517, end: 20040521
  5. LANSOPRAZOLE [Suspect]
     Indication: GASTRIC ULCER
     Dosage: 30 MG, 1 IN 1 DAY, ORAL
     Route: 048
     Dates: start: 20040415, end: 20040521
  6. MEROPEN           (MEROPENEM) [Concomitant]
  7. AMIKACIN SULFATE [Concomitant]
  8. CONIEL (BENIDIPINE HYDROCHLORIDE) [Concomitant]
  9. DOPAMINE HCL [Concomitant]
  10. HEPARIN SODIUM [Concomitant]
  11. BUCLADESINE SODIUM (BUCLADESINE SODIUM) [Concomitant]
  12. GENTAMICIN SULFATE [Concomitant]

REACTIONS (2)
  - DRUG INTERACTION [None]
  - LEUKOPENIA [None]
